FAERS Safety Report 8936583 (Version 1)
Quarter: 2012Q4

REPORT INFORMATION
  Report Type: 
  Country: GB (occurrence: GB)
  Receive Date: 20121130
  Receipt Date: 20121130
  Transmission Date: 20130627
  Serious: Yes (Hospitalization)
  Sender: FDA-Public Use
  Company Number: GB-WATSON-2012-20191

PATIENT
  Age: 48 Year
  Sex: Male

DRUGS (2)
  1. BISOPROLOL (UNKNOWN) [Suspect]
     Indication: PULMONARY CONGESTION
     Dosage: 5 mg, daily
     Route: 065
  2. METOPROLOL TARTRATE (UNKNOWN) [Suspect]
     Indication: PULMONARY CONGESTION
     Dosage: 12.5 mg, daily
     Route: 065

REACTIONS (2)
  - Cardiogenic shock [Recovered/Resolved]
  - Ventricular tachycardia [Recovered/Resolved]
